FAERS Safety Report 5212028-2 (Version None)
Quarter: 2007Q1

REPORT INFORMATION
  Report Type: 
  Country: None (occurrence: None)
  Receive Date: 20070117
  Receipt Date: 20070117
  Transmission Date: 20070707
  Serious: Yes (Hospitalization)
  Sender: FDA-Public Use
  Company Number: None

PATIENT
  Age: 51 Year
  Sex: Male

DRUGS (7)
  1. IMATINIB MESYLATE [Suspect]
     Indication: GLIOBLASTOMA MULTIFORME
     Dosage: 500 MG BID
     Dates: start: 20061225, end: 20070105
  2. PTK [Suspect]
     Indication: GLIOBLASTOMA MULTIFORME
     Dosage: 1250 MG BID
     Dates: start: 20061219, end: 20070105
  3. HYDROXYUREA [Suspect]
     Indication: GLIOBLASTOMA MULTIFORME
     Dosage: 500 MG BID
     Dates: start: 20061225, end: 20070105
  4. DECADRON [Concomitant]
  5. TEGRETOL [Concomitant]
  6. RESTORIL [Concomitant]
  7. LOVENOX [Concomitant]

REACTIONS (2)
  - GRAND MAL CONVULSION [None]
  - PAIN IN EXTREMITY [None]
